FAERS Safety Report 24264459 (Version 1)
Quarter: 2024Q3

REPORT INFORMATION
  Report Type: Spontaneous
  Country: US (occurrence: None)
  Receive Date: 20240828
  Receipt Date: 20240828
  Transmission Date: 20241017
  Serious: Yes (Other)
  Sender: Public
  Company Number: None

PATIENT
  Age: 78 Year
  Sex: Female
  Weight: 76.5 kg

DRUGS (3)
  1. VRAYLAR [Suspect]
     Active Substance: CARIPRAZINE
     Indication: Bipolar disorder
     Dosage: OTHER QUANTITY : 1 CAPSULE(S);?FREQUENCY : AT BEDTIME;?
     Route: 048
     Dates: start: 20240814, end: 20240828
  2. HYDROCODONE [Concomitant]
     Active Substance: HYDROCODONE
  3. VITAMINS [Concomitant]
     Active Substance: VITAMINS

REACTIONS (16)
  - Irritability [None]
  - Somnolence [None]
  - Fatigue [None]
  - Dizziness [None]
  - Vision blurred [None]
  - Muscle spasms [None]
  - Pain [None]
  - Muscle spasms [None]
  - Urine output decreased [None]
  - Nausea [None]
  - Vomiting [None]
  - Swelling face [None]
  - Stomatitis [None]
  - Eructation [None]
  - Weight increased [None]
  - Body temperature increased [None]

NARRATIVE: CASE EVENT DATE: 20240828
